FAERS Safety Report 9636247 (Version 2)
Quarter: 2013Q4

REPORT INFORMATION
  Report Type: Report from Study
  Country: US (occurrence: US)
  Receive Date: 20131021
  Receipt Date: 20131021
  Transmission Date: 20140711
  Serious: Yes (Hospitalization, Other)
  Sender: FDA-Public Use
  Company Number: PHHO2010US09707

PATIENT
  Age: 75 Year
  Sex: Male

DRUGS (1)
  1. SOM230 [Suspect]
     Indication: PANCREATIC CARCINOMA
     Dosage: 900 UG, BID
     Route: 058
     Dates: start: 20100623

REACTIONS (5)
  - Hyperglycaemia [Recovering/Resolving]
  - Cardiac failure [Recovered/Resolved]
  - Acidosis [Recovered/Resolved]
  - Urine output decreased [Recovered/Resolved]
  - Device related infection [Recovered/Resolved]
